FAERS Safety Report 8935453 (Version 2)
Quarter: 2012Q4

REPORT INFORMATION
  Report Type: Spontaneous
  Country: GB (occurrence: None)
  Receive Date: 20121121
  Receipt Date: 20121221
  Transmission Date: 20130627
  Serious: Yes (Death)
  Sender: FDA-Public Use
  Company Number: AUR-APL-2012-04887

PATIENT
  Age: 51 Year
  Sex: Male

DRUGS (4)
  1. RIBAVIRIN [Suspect]
     Indication: HEPATITIS C
     Dates: start: 20120612
  2. PEGINTERFERON ALFA 2B [Suspect]
     Indication: HEPATITIS C
     Route: 058
     Dates: start: 20120605
  3. INCIVO [Suspect]
     Indication: HEPATITIS C
     Route: 048
     Dates: start: 20120605, end: 20120828
  4. CITALOPRAM (CITALOPRAM) [Concomitant]

REACTIONS (2)
  - Sudden death [None]
  - Cardiomegaly [None]
